FAERS Safety Report 5705553-9 (Version None)
Quarter: 2008Q2

REPORT INFORMATION
  Report Type: 
  Country: None (occurrence: None)
  Receive Date: 20080415
  Receipt Date: 20080407
  Transmission Date: 20081010
  Serious: Yes (Other)
  Sender: FDA-Public Use
  Company Number: US-ASTRAZENECA-2008UW07016

PATIENT
  Age: 27617 Day
  Sex: Female
  Weight: 76.2 kg

DRUGS (2)
  1. ARIMIDEX [Suspect]
     Indication: BREAST CANCER FEMALE
     Route: 048
     Dates: start: 20080304
  2. TOPROL-XL [Concomitant]
     Route: 048

REACTIONS (7)
  - ARTHRALGIA [None]
  - BLOOD PRESSURE INCREASED [None]
  - DEPRESSIVE SYMPTOM [None]
  - FATIGUE [None]
  - INSOMNIA [None]
  - MENTAL IMPAIRMENT [None]
  - PAIN IN EXTREMITY [None]
